FAERS Safety Report 12624602 (Version 1)
Quarter: 2016Q3

REPORT INFORMATION
  Report Type: Spontaneous
  Country: US (occurrence: None)
  Receive Date: 20160804
  Receipt Date: 20160804
  Transmission Date: 20161109
  Serious: Yes (Other)
  Sender: FDA-Public Use
  Company Number: None

PATIENT
  Age: 82 Year
  Sex: Female

DRUGS (6)
  1. DIURECTIC [Concomitant]
     Active Substance: UNSPECIFIED INGREDIENT
  2. VITAMIN D [Concomitant]
     Active Substance: CHOLECALCIFEROL
  3. ASPIRIN. [Concomitant]
     Active Substance: ASPIRIN
  4. POTASSIUM [Concomitant]
     Active Substance: POTASSIUM
  5. NAMENDA XR [Suspect]
     Active Substance: MEMANTINE HYDROCHLORIDE
     Indication: MEMORY IMPAIRMENT
     Route: 048
     Dates: start: 20160411, end: 20160713
  6. CALCIUM [Concomitant]
     Active Substance: CALCIUM

REACTIONS (1)
  - Vomiting [None]

NARRATIVE: CASE EVENT DATE: 20160411
